FAERS Safety Report 6800948-4 (Version None)
Quarter: 2010Q2

REPORT INFORMATION
  Report Type: 
  Country: None (occurrence: None)
  Receive Date: 20100629
  Receipt Date: 20100623
  Transmission Date: 20101027
  Serious: Yes (Death, Hospitalization)
  Sender: FDA-Public Use
  Company Number: PHHY2010CH40440

PATIENT
  Age: 60 Year
  Sex: Male

DRUGS (4)
  1. NILOTINIB [Suspect]
     Indication: CHRONIC MYELOID LEUKAEMIA
     Dosage: 400 MG, BID
  2. NILOTINIB [Suspect]
     Dosage: 600 MG/DAY
  3. ESCITALOPRAM [Concomitant]
  4. TORASEMIDE [Concomitant]

REACTIONS (18)
  - ANGINA PECTORIS [None]
  - ANXIETY [None]
  - AORTIC ARTERIOSCLEROSIS [None]
  - ARTERIOSCLEROSIS CORONARY ARTERY [None]
  - ASTHENIA [None]
  - BLOOD PRESSURE DIASTOLIC ABNORMAL [None]
  - BRONCHOPNEUMONIA [None]
  - CARDIAC ARREST [None]
  - CARDIAC HYPERTROPHY [None]
  - CARDIOVASCULAR DECONDITIONING [None]
  - CHEST DISCOMFORT [None]
  - CHILLS [None]
  - DYSPNOEA EXERTIONAL [None]
  - MULTI-ORGAN FAILURE [None]
  - MYOCARDIAL INFARCTION [None]
  - PYREXIA [None]
  - RESUSCITATION [None]
  - VENTRICULAR FIBRILLATION [None]
